FAERS Safety Report 18547136 (Version 1)
Quarter: 2020Q4

REPORT INFORMATION
  Report Type: Spontaneous
  Country: JP (occurrence: JP)
  Receive Date: 20201125
  Receipt Date: 20201125
  Transmission Date: 20210114
  Serious: Yes (Hospitalization)
  Sender: FDA-Public Use
  Company Number: JP-BAYER-2020-222399

PATIENT
  Age: 70 Year
  Sex: Male

DRUGS (1)
  1. NUBEQA [Suspect]
     Active Substance: DAROLUTAMIDE
     Indication: PROSTATE CANCER
     Dosage: DAILY DOSE 1200 MG
     Route: 048
     Dates: start: 20200910

REACTIONS (2)
  - Neutrophil count decreased [Unknown]
  - Pyrexia [Unknown]
